FAERS Safety Report 7539719-2 (Version None)
Quarter: 2011Q2

REPORT INFORMATION
  Report Type: 
  Country: None (occurrence: None)
  Receive Date: 20110610
  Receipt Date: 20110528
  Transmission Date: 20111010
  Serious: Yes (Hospitalization)
  Sender: FDA-Public Use
  Company Number: US-JNJFOC-20110512969

PATIENT
  Sex: Female
  Weight: 119.3 kg

DRUGS (9)
  1. BENICAR [Concomitant]
     Indication: HYPERTENSION
     Route: 048
  2. METHOTREXATE [Concomitant]
     Indication: ARTHRITIS
     Route: 048
  3. REMICADE [Suspect]
     Indication: RHEUMATOID ARTHRITIS
     Route: 042
  4. OMEPRAZOLE [Concomitant]
     Indication: GASTROOESOPHAGEAL REFLUX DISEASE
     Route: 048
  5. ADVAIR DISKUS 100/50 [Concomitant]
     Indication: ASTHMA
     Route: 055
  6. LASIX [Concomitant]
     Route: 048
  7. HYDROCODONE BITARTRATE [Concomitant]
     Indication: PAIN
     Dosage: 5-500 MG AS NEEDED
     Route: 048
  8. FLONASE [Concomitant]
     Indication: ASTHMA
     Route: 045
  9. MEDROL [Concomitant]
     Indication: ARTHRITIS
     Route: 048

REACTIONS (4)
  - CHRONIC OBSTRUCTIVE PULMONARY DISEASE [None]
  - OEDEMA PERIPHERAL [None]
  - PAIN IN EXTREMITY [None]
  - ASTHMA [None]
